FAERS Safety Report 4695704-X (Version None)
Quarter: 2005Q2

REPORT INFORMATION
  Report Type: 
  Country: None (occurrence: None)
  Receive Date: 20050621
  Receipt Date: 20050609
  Transmission Date: 20051028
  Serious: Yes (Death, Hospitalization)
  Sender: FDA-Public Use
  Company Number: CA-JNJFOC-20050603426

PATIENT
  Age: 76 Year
  Sex: Male
  Weight: 80 kg

DRUGS (9)
  1. REMICADE [Suspect]
     Indication: RHEUMATOID ARTHRITIS
     Route: 042
  2. ARAVA [Suspect]
     Indication: RHEUMATOID ARTHRITIS
     Dosage: AT LEAST FOUR MONTHS DURATION PRIOR TO INFLIXIMAB INITIATION
     Route: 049
  3. NAPROSEN [Concomitant]
     Route: 049
  4. INDERAL [Concomitant]
  5. FLOMAX [Concomitant]
  6. TIAPROFENIC ACID [Concomitant]
  7. INDOCID [Concomitant]
  8. ENDOCET [Concomitant]
  9. ENDOCET [Concomitant]

REACTIONS (2)
  - DEATH [None]
  - SEPSIS [None]
